FAERS Safety Report 4745559-X (Version None)
Quarter: 2005Q3

REPORT INFORMATION
  Report Type: 
  Country: None (occurrence: None)
  Receive Date: 20050812
  Receipt Date: 20050429
  Transmission Date: 20060218
  Serious: Yes (Other)
  Sender: FDA-Public Use
  Company Number: US-2005-006906

PATIENT
  Age: 40 Year
  Sex: Female
  Weight: 67.6 kg

DRUGS (1)
  1. LEVLITE [Suspect]
     Indication: VAGINAL HAEMORRHAGE
     Dosage: 1 TAB(S), 1X/DAY, ORAL
     Route: 048
     Dates: start: 20040308, end: 20041101

REACTIONS (1)
  - DEEP VEIN THROMBOSIS [None]
